FAERS Safety Report 12615083 (Version 1)
Quarter: 2016Q3

REPORT INFORMATION
  Report Type: Spontaneous
  Country: US (occurrence: US)
  Receive Date: 20160802
  Receipt Date: 20160802
  Transmission Date: 20161109
  Serious: No
  Sender: FDA-Public Use
  Company Number: US-PERRIGO-16US015394

PATIENT
  Sex: Female
  Weight: 56.69 kg

DRUGS (1)
  1. MINOXIDIL. [Suspect]
     Active Substance: MINOXIDIL
     Indication: ALOPECIA
     Dosage: 1 ML, QD
     Route: 061
     Dates: start: 2014, end: 2014

REACTIONS (2)
  - Off label use [Recovered/Resolved]
  - Application site scab [Recovered/Resolved]

NARRATIVE: CASE EVENT DATE: 2014
